FAERS Safety Report 8845848 (Version 1)
Quarter: 2012Q4

REPORT INFORMATION
  Report Type: 
  Country: US (occurrence: US)
  Receive Date: 20121017
  Receipt Date: 20121017
  Transmission Date: 20130627
  Serious: Yes (Other)
  Sender: FDA-Public Use
  Company Number: US-ROCHE-1110384

PATIENT
  Sex: Female

DRUGS (1)
  1. XELODA [Suspect]
     Indication: GASTRIC CANCER
     Route: 065

REACTIONS (6)
  - Metastases to thyroid [Unknown]
  - Disease progression [Unknown]
  - Dysphonia [Unknown]
  - Weight decreased [Unknown]
  - Pleural effusion [Unknown]
  - Malaise [Unknown]
